FAERS Safety Report 7062327-7 (Version None)
Quarter: 2010Q4

REPORT INFORMATION
  Report Type: 
  Country: None (occurrence: None)
  Receive Date: 20101026
  Receipt Date: 20101014
  Transmission Date: 20110411
  Serious: Yes (Other)
  Sender: FDA-Public Use
  Company Number: DE-GENENTECH-306318

PATIENT
  Sex: Male
  Weight: 91 kg

DRUGS (2)
  1. MABTHERA [Suspect]
     Indication: B-CELL LYMPHOMA
     Dosage: 750 MG, Q4W
     Route: 042
     Dates: start: 20090301, end: 20090727
  2. CLEMASTINE FUMARATE [Concomitant]
     Indication: PROPHYLAXIS
     Dosage: UNK
     Dates: start: 20090301

REACTIONS (1)
  - LENTIGO MALIGNA STAGE UNSPECIFIED [None]
